FAERS Safety Report 19367227 (Version 1)
Quarter: 2021Q2

REPORT INFORMATION
  Report Type: Spontaneous
  Country: US (occurrence: US)
  Receive Date: 20210603
  Receipt Date: 20210603
  Transmission Date: 20210717
  Serious: Yes (Other)
  Sender: FDA-Public Use
  Company Number: US-FRESENIUS KABI-FK202105556

PATIENT

DRUGS (1)
  1. CARBOPLATIN (MANUFACTURER UNKNOWN) [Suspect]
     Active Substance: CARBOPLATIN
     Indication: CONGENITAL RETINOBLASTOMA
     Route: 065

REACTIONS (2)
  - Vomiting [Recovered/Resolved]
  - Hypophagia [Recovered/Resolved]
